FAERS Safety Report 9863178 (Version 2)
Quarter: 2014Q1

REPORT INFORMATION
  Report Type: Report from Study
  Country: US (occurrence: US)
  Receive Date: 20140203
  Receipt Date: 20140212
  Transmission Date: 20141002
  Serious: Yes (Death)
  Sender: FDA-Public Use
  Company Number: US-ACTELION-A-NJ2014-94059

PATIENT
  Age: 67 Year
  Sex: Female

DRUGS (2)
  1. TRACLEER [Suspect]
     Indication: PULMONARY ARTERIAL HYPERTENSION
     Route: 048
  2. COUMADIN [Concomitant]

REACTIONS (3)
  - Hypoxic-ischaemic encephalopathy [Fatal]
  - Cerebrovascular accident [Fatal]
  - Pneumonia [Fatal]
